FAERS Safety Report 23746539 (Version 1)
Quarter: 2024Q2

REPORT INFORMATION
  Report Type: Spontaneous
  Country: FR (occurrence: FR)
  Receive Date: 20240416
  Receipt Date: 20240416
  Transmission Date: 20240716
  Serious: Yes (Life-Threatening, Other)
  Sender: FDA-Public Use
  Company Number: FR-SANOFI-AVENTIS-2012SA045084

PATIENT
  Age: 54 Year
  Sex: Female
  Weight: 62 kg

DRUGS (3)
  1. CEFTRIAXONE SODIUM [Suspect]
     Active Substance: CEFTRIAXONE SODIUM
     Indication: Enterocolitis bacterial
     Dosage: 1 DOSAGE FORM, QD
     Route: 040
     Dates: start: 20120504, end: 20120505
  2. CIPROFLOXACIN [Suspect]
     Active Substance: CIPROFLOXACIN
     Indication: Enterocolitis bacterial
     Dosage: 1 DOSAGE FORM, Q12H (1 DF,BID)
     Route: 048
     Dates: start: 20120502, end: 20120506
  3. FLAGYL [Suspect]
     Active Substance: METRONIDAZOLE\METRONIDAZOLE HYDROCHLORIDE
     Indication: Enterocolitis bacterial
     Dosage: 1 DOSAGE FORM, Q8H (1 DF,TID)
     Route: 048
     Dates: start: 20120502, end: 20120506

REACTIONS (1)
  - Thrombotic thrombocytopenic purpura [Recovered/Resolved with Sequelae]

NARRATIVE: CASE EVENT DATE: 20120506
